FAERS Safety Report 6803009-3 (Version None)
Quarter: 2010Q2

REPORT INFORMATION
  Report Type: 
  Country: None (occurrence: None)
  Receive Date: 20100628
  Receipt Date: 20100616
  Transmission Date: 20101027
  Serious: Yes (Other)
  Sender: FDA-Public Use
  Company Number: US-PFIZER INC-2010032936

PATIENT
  Sex: Male
  Weight: 89.811 kg

DRUGS (1)
  1. CHANTIX [Suspect]
     Indication: TOBACCO ABUSE
     Dosage: UNK
     Dates: start: 20080701, end: 20100301

REACTIONS (8)
  - BLOOD PRESSURE INCREASED [None]
  - CONFUSIONAL STATE [None]
  - HYPERSENSITIVITY [None]
  - LETHARGY [None]
  - OEDEMA MOUTH [None]
  - PALLOR [None]
  - PULSE ABNORMAL [None]
  - SPEECH DISORDER [None]
